FAERS Safety Report 14579784 (Version 2)
Quarter: 2018Q2

REPORT INFORMATION
  Report Type: Spontaneous
  Country: FR (occurrence: FR)
  Receive Date: 20180227
  Receipt Date: 20180417
  Transmission Date: 20180711
  Serious: Yes (Other)
  Sender: FDA-Public Use
  Company Number: FR-AMGEN-FRASP2018023586

PATIENT
  Sex: Female

DRUGS (2)
  1. VITAMIN D [Concomitant]
     Active Substance: CHOLECALCIFEROL
     Dosage: UNK
  2. PROLIA [Suspect]
     Active Substance: DENOSUMAB
     Indication: OSTEOPOROSIS
     Dosage: 60 MG, UNK
     Route: 058
     Dates: start: 20140714, end: 20141211

REACTIONS (10)
  - Tendon injury [Unknown]
  - Pain [Not Recovered/Not Resolved]
  - Muscle strain [Unknown]
  - Lip injury [Unknown]
  - Fall [Unknown]
  - Tooth loss [Unknown]
  - Procedural pain [Unknown]
  - Disability [Unknown]
  - Adverse event [Unknown]
  - Gingival disorder [Unknown]

NARRATIVE: CASE EVENT DATE: 2018
